FAERS Safety Report 7206157-1 (Version None)
Quarter: 2010Q4

REPORT INFORMATION
  Report Type: 
  Country: None (occurrence: None)
  Receive Date: 20101229
  Receipt Date: 20101229
  Transmission Date: 20110411
  Serious: Yes (Life-Threatening)
  Sender: FDA-Public Use
  Company Number: None

PATIENT
  Age: 52 Year
  Sex: Male
  Weight: 84.8 kg

DRUGS (5)
  1. MOXIFLOXACIN [Suspect]
     Indication: BLOOD BICARBONATE INCREASED
     Dosage: 400 MG EVERY DAY IV
     Route: 042
     Dates: start: 20100814, end: 20100814
  2. MOXIFLOXACIN [Suspect]
     Indication: BLOOD PH DECREASED
     Dosage: 400 MG EVERY DAY IV
     Route: 042
     Dates: start: 20100814, end: 20100814
  3. MOXIFLOXACIN [Suspect]
     Indication: BLOOD PRESSURE SYSTOLIC INCREASED
     Dosage: 400 MG EVERY DAY IV
     Route: 042
     Dates: start: 20100814, end: 20100814
  4. MOXIFLOXACIN [Suspect]
     Indication: PNEUMONIA
     Dosage: 400 MG EVERY DAY IV
     Route: 042
     Dates: start: 20100814, end: 20100814
  5. MOXIFLOXACIN [Suspect]
     Indication: PO2 INCREASED
     Dosage: 400 MG EVERY DAY IV
     Route: 042
     Dates: start: 20100814, end: 20100814

REACTIONS (1)
  - CARDIAC ARREST [None]
